FAERS Safety Report 24681964 (Version 4)
Quarter: 2025Q1

REPORT INFORMATION
  Report Type: Spontaneous
  Country: DE (occurrence: DE)
  Receive Date: 20241130
  Receipt Date: 20250113
  Transmission Date: 20250409
  Serious: Yes (Hospitalization, Other)
  Sender: ALEXION PHARMACEUTICALS
  Company Number: DE-AstraZeneca-CH-00752808A

PATIENT
  Age: 63 Year
  Weight: 122 kg

DRUGS (19)
  1. DAPAGLIFLOZIN [Suspect]
     Active Substance: DAPAGLIFLOZIN
     Indication: Cardiac failure
     Dosage: 10 MILLIGRAM, BID
  2. CEFTRIAXONE [Concomitant]
     Active Substance: CEFTRIAXONE
     Route: 065
  3. METRONIDAZOLE [Concomitant]
     Active Substance: METRONIDAZOLE
     Route: 065
  4. MEROPENEM [Concomitant]
     Active Substance: MEROPENEM
     Route: 065
  5. VANCOMYCIN [Concomitant]
     Active Substance: VANCOMYCIN
     Route: 065
  6. APIXABAN [Concomitant]
     Active Substance: APIXABAN
  7. DAPAGLIFLOZIN [Concomitant]
     Active Substance: DAPAGLIFLOZIN
  8. PANTOPRAZOLE SODIUM [Concomitant]
     Active Substance: PANTOPRAZOLE SODIUM
  9. SPIRONOLACTONE [Concomitant]
     Active Substance: SPIRONOLACTONE
  10. VENLAFAXINE [Concomitant]
     Active Substance: VENLAFAXINE HYDROCHLORIDE
  11. ATORVASTATIN [Concomitant]
     Active Substance: ATORVASTATIN
  12. EZETIMIBE [Concomitant]
     Active Substance: EZETIMIBE
  13. NEBIVOLOL [Concomitant]
     Active Substance: NEBIVOLOL
  14. SYMBICORT [Concomitant]
     Active Substance: BUDESONIDE\FORMOTEROL FUMARATE DIHYDRATE
  15. TIRZEPATIDE [Concomitant]
     Active Substance: TIRZEPATIDE
  16. CANDESARTAN [Concomitant]
     Active Substance: CANDESARTAN
  17. AMLODIPINE BESYLATE [Concomitant]
     Active Substance: AMLODIPINE BESYLATE
  18. HERBALS [Concomitant]
     Active Substance: HERBALS
     Route: 065
  19. METAMIZOLE [Concomitant]
     Active Substance: METAMIZOLE
     Route: 065

REACTIONS (7)
  - Pancreatitis acute [Not Recovered/Not Resolved]
  - Barrett^s oesophagus [Unknown]
  - Gastritis [Unknown]
  - Mucosal atrophy [Unknown]
  - Gastric mucosal lesion [Unknown]
  - Renal impairment [Unknown]
  - Pain [Unknown]
